FAERS Safety Report 8100641-4 (Version None)
Quarter: 2012Q1

REPORT INFORMATION
  Report Type: 
  Country: None (occurrence: None)
  Receive Date: 20120131
  Receipt Date: 20120124
  Transmission Date: 20120608
  Serious: Yes (Life-Threatening, Other)
  Sender: FDA-Public Use
  Company Number: GB-PFIZER INC-2011299443

PATIENT
  Age: 31 Year
  Sex: Female
  Weight: 82 kg

DRUGS (4)
  1. EFFEXOR XR [Suspect]
     Indication: DEPRESSION
     Dosage: 150 MG DAILY
     Route: 048
     Dates: start: 20090301
  2. TIBOLONE [Concomitant]
     Dosage: 2.5 MG, 1X/DAY
     Route: 048
     Dates: start: 20100928
  3. LAMOTRIGINE [Concomitant]
     Dosage: 100 MG, 2X/DAY
     Route: 048
  4. LAMOTRIGINE [Concomitant]
     Dosage: 50 MG, 2X/DAY
     Route: 048
     Dates: start: 20100928

REACTIONS (9)
  - TINNITUS [None]
  - ANXIETY [None]
  - DEPRESSION [None]
  - SUICIDAL BEHAVIOUR [None]
  - DIZZINESS [None]
  - CRYING [None]
  - TREMOR [None]
  - EMOTIONAL DISTRESS [None]
  - PARAESTHESIA [None]
